FAERS Safety Report 9685582 (Version 3)
Quarter: 2014Q1

REPORT INFORMATION
  Report Type: Spontaneous
  Country: US (occurrence: US)
  Receive Date: 20131113
  Receipt Date: 20140102
  Transmission Date: 20141002
  Serious: Yes (Hospitalization)
  Sender: FDA-Public Use
  Company Number: US-ROXANE LABORATORIES, INC.-2013-RO-01808RO

PATIENT
  Age: 53 Year
  Sex: Male
  Weight: 74 kg

DRUGS (5)
  1. FLECAINIDE [Suspect]
     Indication: HEART RATE IRREGULAR
     Dosage: 200 MG
     Route: 048
     Dates: start: 201309, end: 20131016
  2. FLECAINIDE [Suspect]
     Indication: VENTRICULAR EXTRASYSTOLES
     Dosage: 100 MG
     Route: 048
     Dates: start: 201308, end: 20131018
  3. LISINOPRIL [Concomitant]
     Indication: HYPERTENSION
  4. BYSTOLIC [Concomitant]
     Indication: HYPERTENSION
  5. ZYRTEC [Concomitant]

REACTIONS (2)
  - Mania [Recovered/Resolved]
  - Violence-related symptom [Unknown]
